FAERS Safety Report 5631036-0 (Version None)
Quarter: 2008Q1

REPORT INFORMATION
  Report Type: 
  Country: None (occurrence: None)
  Receive Date: 20080219
  Receipt Date: 20080211
  Transmission Date: 20080703
  Serious: Yes (Life-Threatening, Hospitalization)
  Sender: FDA-Public Use
  Company Number: FR-PFIZER INC-2007100772

PATIENT
  Sex: Female
  Weight: 93 kg

DRUGS (7)
  1. AROMASIN [Suspect]
     Indication: BREAST CANCER
     Route: 048
  2. LEVOTHYROXINE SODIUM [Concomitant]
     Indication: AUTOIMMUNE THYROIDITIS
     Route: 048
  3. KETOPROFEN [Concomitant]
     Indication: BACK PAIN
     Route: 030
  4. TETRAZEPAM [Concomitant]
     Indication: BACK PAIN
     Route: 048
  5. ACETAMINOPHEN [Concomitant]
     Indication: BACK PAIN
     Dosage: TEXT:BETWEEN 4 AND 6 TABLETS DAILY
     Route: 048
  6. PANTOPRAZOLE SODIUM [Concomitant]
     Indication: BACK PAIN
     Route: 048
  7. CORTIVAZOL [Concomitant]
     Indication: BACK PAIN

REACTIONS (1)
  - PULMONARY EMBOLISM [None]
